FAERS Safety Report 17830354 (Version 1)
Quarter: 2020Q2

REPORT INFORMATION
  Report Type: Spontaneous
  Country: US (occurrence: US)
  Receive Date: 20200527
  Receipt Date: 20200527
  Transmission Date: 20200714
  Serious: Yes (Hospitalization)
  Sender: FDA-Public Use
  Company Number: US-PFIZER INC-2020206274

PATIENT
  Age: 72 Year
  Sex: Female

DRUGS (8)
  1. MIDAZOLAM. [Concomitant]
     Active Substance: MIDAZOLAM
     Indication: SEDATION
     Dosage: UNK
     Route: 042
  2. METHYLPREDNISOLONE ACETATE. [Suspect]
     Active Substance: METHYLPREDNISOLONE ACETATE
     Indication: RADICULOPATHY
     Dosage: 40 MG
     Route: 008
  3. METHYLPREDNISOLONE ACETATE. [Suspect]
     Active Substance: METHYLPREDNISOLONE ACETATE
     Indication: NECK PAIN
  4. PROPOFOL. [Concomitant]
     Active Substance: PROPOFOL
     Indication: SEDATION
     Dosage: UNK
     Route: 042
  5. BUPIVACAINE. [Concomitant]
     Active Substance: BUPIVACAINE
     Indication: NECK PAIN
  6. FENTANYL CITRATE. [Concomitant]
     Active Substance: FENTANYL CITRATE
     Indication: SEDATION
     Dosage: UNK
     Route: 042
  7. BUPIVACAINE. [Concomitant]
     Active Substance: BUPIVACAINE
     Indication: RADICULOPATHY
     Dosage: 0.7 ML
     Route: 008
  8. ISOVUE [Concomitant]
     Active Substance: IOPAMIDOL
     Dosage: UNK

REACTIONS (3)
  - Spinal cord infarction [Recovering/Resolving]
  - Paresis [Recovering/Resolving]
  - Paraplegia [Recovering/Resolving]
